FAERS Safety Report 4662446-6 (Version None)
Quarter: 2005Q2

REPORT INFORMATION
  Report Type: 
  Country: None (occurrence: None)
  Receive Date: 20050513
  Receipt Date: 20050513
  Transmission Date: 20051028
  Serious: Yes (Hospitalization)
  Sender: FDA-Public Use
  Company Number: None

PATIENT
  Age: 59 Year
  Sex: Male

DRUGS (28)
  1. GATIFLOXACIN [Suspect]
     Indication: PNEUMONIA
     Dosage: 400MG  PO QD
     Route: 048
     Dates: start: 20050318, end: 20050326
  2. PREDNISONE [Suspect]
     Indication: CHRONIC OBSTRUCTIVE PULMONARY DISEASE
     Dosage: 60MG  PO QD TAPER
     Route: 048
  3. FLUCTICOZONE [Concomitant]
  4. COMBIVENT [Concomitant]
  5. HOME O2 [Concomitant]
  6. COLACE [Concomitant]
  7. SIMVASTATIN [Concomitant]
  8. ASPIRIN [Concomitant]
  9. GUAIFENESIN AND CODEINE [Concomitant]
  10. IRON SULFATETHIAMIN COMPOUND TAB [Concomitant]
  11. PREDNISONE [Concomitant]
  12. ISOSORBIDE DINITRATE [Concomitant]
  13. NITROGLYCERIN [Concomitant]
  14. TRAVAPROST [Concomitant]
  15. OMEPRAZOLE [Concomitant]
  16. HYDRALAZINE HCL [Concomitant]
  17. ENALAPRIL MALEATE [Concomitant]
  18. COLCHICINE [Concomitant]
  19. METOPROLOL [Concomitant]
  20. PLAVIX [Concomitant]
  21. METFORMIN [Concomitant]
  22. THIAMINE [Concomitant]
  23. MULTI-VITAMIN [Concomitant]
  24. FOLATE [Concomitant]
  25. CALCIUM CARBONATE [Concomitant]
  26. VITAMIN D [Concomitant]
  27. TEQUIN [Concomitant]
  28. MUPIROCIN [Concomitant]

REACTIONS (2)
  - DIABETIC KETOACIDOSIS [None]
  - RENAL FAILURE [None]
